FAERS Safety Report 5284450-X (Version None)
Quarter: 2007Q2

REPORT INFORMATION
  Report Type: 
  Country: None (occurrence: None)
  Receive Date: 20070403
  Receipt Date: 20070330
  Transmission Date: 20071010
  Serious: Yes (Other)
  Sender: FDA-Public Use
  Company Number: 2006UW26098

PATIENT
  Sex: Female
  Weight: 95.5 kg

DRUGS (5)
  1. SEROQUEL [Suspect]
     Indication: SLEEP DISORDER
     Route: 048
     Dates: start: 20041101, end: 20060101
  2. SEROQUEL [Suspect]
     Indication: DEPRESSION
     Route: 048
     Dates: start: 20041101, end: 20060101
  3. CLONOPIN [Concomitant]
  4. LEXAPRO [Concomitant]
  5. LAMICTAL [Concomitant]

REACTIONS (5)
  - DIABETES MELLITUS [None]
  - DIABETIC COMA [None]
  - KETOACIDOSIS [None]
  - POST-TRAUMATIC STRESS DISORDER [None]
  - SYSTEMIC LUPUS ERYTHEMATOSUS [None]
